FAERS Safety Report 8477297-4 (Version None)
Quarter: 2012Q2

REPORT INFORMATION
  Report Type: 
  Country: None (occurrence: None)
  Receive Date: 20120629
  Receipt Date: 20120619
  Transmission Date: 20120825
  Serious: Yes (Hospitalization, Other)
  Sender: FDA-Public Use
  Company Number: JP-JNJFOC-20120520095

PATIENT
  Sex: Female
  Weight: 51 kg

DRUGS (12)
  1. REMICADE [Suspect]
     Indication: RHEUMATOID ARTHRITIS
     Route: 042
     Dates: start: 20100630
  2. METHOTREXATE [Suspect]
     Indication: RHEUMATOID ARTHRITIS
     Route: 048
     Dates: end: 20120214
  3. REMICADE [Suspect]
     Route: 042
     Dates: start: 20080903
  4. REMICADE [Suspect]
     Route: 042
     Dates: start: 20090401
  5. FOLIAMIN [Concomitant]
     Indication: PROPHYLAXIS AGAINST GASTROINTESTINAL ULCER
     Route: 048
     Dates: start: 20120213
  6. LANSOPRAZOLE [Concomitant]
     Indication: PROPHYLAXIS AGAINST GASTROINTESTINAL ULCER
     Route: 048
     Dates: start: 20081113
  7. REMICADE [Suspect]
     Route: 042
     Dates: start: 20110101, end: 20110601
  8. PREDNISOLONE [Concomitant]
     Indication: RHEUMATOID ARTHRITIS
     Route: 048
  9. METHOTREXATE [Suspect]
     Route: 048
     Dates: start: 20060101
  10. REMICADE [Suspect]
     Dosage: 11 TH DOSE
     Route: 042
     Dates: start: 20091225
  11. TALION [Concomitant]
     Indication: HYPERSENSITIVITY
     Route: 048
     Dates: start: 20080908
  12. ACETAMINOPHEN [Concomitant]
     Indication: PYREXIA
     Route: 048
     Dates: start: 20080903

REACTIONS (4)
  - CHRONIC TONSILLITIS [None]
  - PERIODONTITIS [None]
  - NEPHROTIC SYNDROME [None]
  - LYMPHOPROLIFERATIVE DISORDER [None]
